FAERS Safety Report 7231801-2 (Version None)
Quarter: 2011Q1

REPORT INFORMATION
  Report Type: 
  Country: None (occurrence: None)
  Receive Date: 20110118
  Receipt Date: 20110107
  Transmission Date: 20110831
  Serious: Yes (Other)
  Sender: FDA-Public Use
  Company Number: US-ASTRAZENECA-2011SE01535

PATIENT
  Sex: Female

DRUGS (6)
  1. ANALGESIC CREAM [Concomitant]
  2. SEROQUEL [Suspect]
     Route: 048
  3. SEROQUEL [Suspect]
     Indication: SLEEP TERROR
     Route: 048
  4. SEROQUEL [Suspect]
     Indication: FLASHBACK
     Route: 048
  5. SEROQUEL [Suspect]
     Route: 048
  6. OXYGEN [Concomitant]

REACTIONS (9)
  - TOOTHACHE [None]
  - SLEEP DISORDER [None]
  - CHRONIC OBSTRUCTIVE PULMONARY DISEASE [None]
  - CARDIAC FAILURE CONGESTIVE [None]
  - CARPAL TUNNEL SYNDROME [None]
  - PAIN [None]
  - TYPE 2 DIABETES MELLITUS [None]
  - MYOCARDIAL INFARCTION [None]
  - THERAPEUTIC RESPONSE UNEXPECTED [None]
